FAERS Safety Report 7138999-5 (Version None)
Quarter: 2010Q4

REPORT INFORMATION
  Report Type: 
  Country: None (occurrence: None)
  Receive Date: 20101202
  Receipt Date: 20101202
  Transmission Date: 20110411
  Serious: No
  Sender: FDA-Public Use
  Company Number: None

PATIENT
  Sex: Female

DRUGS (9)
  1. HUMIRA [Suspect]
     Indication: RHEUMATOID ARTHRITIS
     Dosage: 40 MG -0.8ML- EVERY 2 WEEKS SQ
     Route: 058
     Dates: start: 20090901, end: 20101101
  2. CALCIUM [Concomitant]
  3. FISH OIL [Concomitant]
  4. LIPITOR [Concomitant]
  5. LISINOPRIL [Concomitant]
  6. MULTIPLE VITAMINS [Concomitant]
  7. PREDNISONE [Concomitant]
  8. SYNTHROID [Concomitant]
  9. VOLTAREN [Concomitant]

REACTIONS (1)
  - LYMPHOMA [None]
